FAERS Safety Report 12154277 (Version 2)
Quarter: 2016Q1

REPORT INFORMATION
  Report Type: Spontaneous
  Country: FR (occurrence: FR)
  Receive Date: 20160307
  Receipt Date: 20160309
  Transmission Date: 20160526
  Serious: Yes (Hospitalization)
  Sender: FDA-Public Use
  Company Number: FR-UNITED THERAPEUTICS-UNT-2016-003091

PATIENT
  Age: 69 Year
  Sex: Female

DRUGS (9)
  1. PONATINIB [Suspect]
     Active Substance: PONATINIB
     Indication: PULMONARY ARTERIAL HYPERTENSION
     Dosage: UNK
  2. PONATINIB [Suspect]
     Active Substance: PONATINIB
     Indication: PLEURAL EFFUSION
     Dosage: 45 MG, UNK
     Dates: start: 201304
  3. ASPIRIN                            /00002701/ [Concomitant]
     Active Substance: ASPIRIN
     Dosage: 100 MG, QD
  4. FUROSEMIDE. [Concomitant]
     Active Substance: FUROSEMIDE
     Indication: PRODUCT USED FOR UNKNOWN INDICATION
  5. REMODULIN [Suspect]
     Active Substance: TREPROSTINIL
     Indication: RIGHT VENTRICULAR FAILURE
     Dosage: UNK
     Route: 058
     Dates: start: 201401
  6. NITRIC OXIDE. [Concomitant]
     Active Substance: NITRIC OXIDE
     Indication: PULMONARY ARTERIAL PRESSURE
  7. AMBRISENTAN [Concomitant]
     Active Substance: AMBRISENTAN
     Indication: RIGHT VENTRICULAR FAILURE
     Dosage: 5 MG, QD
  8. PONATINIB [Suspect]
     Active Substance: PONATINIB
     Dosage: 35 MG, QD
  9. SILDENAFIL. [Concomitant]
     Active Substance: SILDENAFIL
     Indication: PRODUCT USED FOR UNKNOWN INDICATION
     Dosage: 20 MG, TID

REACTIONS (1)
  - Cerebrovascular accident [Recovering/Resolving]

NARRATIVE: CASE EVENT DATE: 201401
